FAERS Safety Report 23948393 (Version 1)
Quarter: 2024Q2

REPORT INFORMATION
  Report Type: Spontaneous
  Country: KR (occurrence: KR)
  Receive Date: 20240607
  Receipt Date: 20240607
  Transmission Date: 20240716
  Serious: Yes (Death, Life-Threatening, Other)
  Sender: FDA-Public Use
  Company Number: None

PATIENT
  Age: 41 Year
  Sex: Female

DRUGS (10)
  1. PAROXETINE [Suspect]
     Active Substance: PAROXETINE
     Indication: Completed suicide
     Dosage: UNK, UNK
     Route: 065
  2. PAROXETINE [Suspect]
     Active Substance: PAROXETINE
     Indication: Antidepressant therapy
  3. DESVENLAFAXINE [Suspect]
     Active Substance: DESVENLAFAXINE
     Indication: Antidepressant therapy
     Dosage: UNK, UNK
     Route: 065
  4. DESVENLAFAXINE [Suspect]
     Active Substance: DESVENLAFAXINE
     Indication: Suicide attempt
  5. DIAZEPAM [Concomitant]
     Active Substance: DIAZEPAM
     Indication: Antidepressant therapy
     Dosage: UNK, UNK
     Route: 065
  6. OXIRACETAM [Concomitant]
     Active Substance: OXIRACETAM
     Indication: Antidepressant therapy
     Dosage: UNK, UNK
     Route: 065
  7. QUETIAPINE [Concomitant]
     Active Substance: QUETIAPINE
     Indication: Antidepressant therapy
     Dosage: UNK, UNK
     Route: 065
  8. FLUNITRAZEPAM [Concomitant]
     Active Substance: FLUNITRAZEPAM
     Indication: Antidepressant therapy
     Dosage: UNK, UNK
     Route: 065
  9. VALPROIC ACID [Concomitant]
     Active Substance: VALPROIC ACID
     Indication: Antidepressant therapy
     Dosage: UNK, UNK
     Route: 065
  10. CLONAZEPAM [Concomitant]
     Active Substance: CLONAZEPAM
     Indication: Antidepressant therapy
     Dosage: UNK, UNK
     Route: 065

REACTIONS (3)
  - Dilated cardiomyopathy [Fatal]
  - Intentional overdose [Fatal]
  - Toxicity to various agents [Fatal]
